FAERS Safety Report 20670198 (Version 1)
Quarter: 2022Q2

REPORT INFORMATION
  Report Type: Spontaneous
  Country: RU (occurrence: None)
  Receive Date: 20220404
  Receipt Date: 20220404
  Transmission Date: 20220721
  Serious: Yes (Death, Other)
  Sender: FDA-Public Use
  Company Number: RU-ROCHE-3048128

PATIENT
  Age: 35 Year
  Sex: Female

DRUGS (4)
  1. ATEZOLIZUMAB [Suspect]
     Active Substance: ATEZOLIZUMAB
     Indication: Small cell lung cancer
     Dosage: 23/OCT/2021 : THERAPY WITH UP TO 4 CYCLES OF ATEZOLIZUMAB/ETOPOSIDE/CARBOPLATIN REGIMEN WAS CONTINUE
     Route: 065
     Dates: start: 202108
  2. ETOPOSIDE [Suspect]
     Active Substance: ETOPOSIDE
     Indication: Product used for unknown indication
     Route: 065
     Dates: start: 202108
  3. CARBOPLATIN [Suspect]
     Active Substance: CARBOPLATIN
     Indication: Product used for unknown indication
     Route: 065
     Dates: start: 202108
  4. ZOLEDRONIC ACID [Concomitant]
     Active Substance: ZOLEDRONIC ACID
     Route: 042

REACTIONS (3)
  - Neutropenia [Unknown]
  - Disease progression [Unknown]
  - COVID-19 [Fatal]

NARRATIVE: CASE EVENT DATE: 20210801
